FAERS Safety Report 26119612 (Version 1)
Quarter: 2025Q4

REPORT INFORMATION
  Report Type: Spontaneous
  Country: EU (occurrence: EU)
  Receive Date: 20251204
  Receipt Date: 20251204
  Transmission Date: 20260118
  Serious: Yes (Hospitalization)
  Sender: AUROBINDO
  Company Number: EU-AEMPS-1777481

PATIENT
  Age: 30 Year
  Sex: Male

DRUGS (4)
  1. NAPROXEN SODIUM [Suspect]
     Active Substance: NAPROXEN SODIUM
     Indication: Migraine
     Dosage: 550 MILLIGRAM, TWO TIMES A DAY (550 MG EVERY 12 HOURS)
     Dates: start: 20240704, end: 20250923
  2. ACETAMINOPHEN\TRAMADOL [Suspect]
     Active Substance: ACETAMINOPHEN\TRAMADOL
     Indication: Migraine
     Dosage: 1 DOSAGE FORM, TWO TIMES A DAY (37.5MG/325MG EVERY 12H)
     Dates: start: 20150911, end: 20250923
  3. METAMIZOLE SODIUM [Suspect]
     Active Substance: METAMIZOLE SODIUM
     Indication: Migraine
     Dosage: 575 MILLIGRAM, TWO TIMES A DAY (575 MG 1-0-1)
     Dates: start: 20150625
  4. SUMATRIPTAN SUCCINATE [Suspect]
     Active Substance: SUMATRIPTAN SUCCINATE
     Indication: Migraine
     Dosage: 50 MILLIGRAM, ONCE A DAY (50MG 1-0-0)
     Dates: start: 20190211, end: 20250901

REACTIONS (2)
  - Medication overuse headache [Recovered/Resolved]
  - Condition aggravated [Recovered/Resolved]

NARRATIVE: CASE EVENT DATE: 20250828
